FAERS Safety Report 6919749-1 (Version None)
Quarter: 2010Q3

REPORT INFORMATION
  Report Type: 
  Country: None (occurrence: None)
  Receive Date: 20100810
  Receipt Date: 20100810
  Transmission Date: 20110219
  Serious: Yes (Life-Threatening, Hospitalization, Other)
  Sender: FDA-Public Use
  Company Number: None

PATIENT
  Sex: Male
  Weight: 78.1 kg

DRUGS (3)
  1. CLOZARIL [Suspect]
     Indication: SCHIZOPHRENIA
     Dosage: 250MG QAM PO 275MG QPM (MONTHS)
     Route: 048
  2. BUSPAR [Concomitant]
  3. LOVASTATIN [Concomitant]

REACTIONS (8)
  - ABDOMINAL DISTENSION [None]
  - ALCOHOL USE [None]
  - DIARRHOEA [None]
  - INTESTINAL OBSTRUCTION [None]
  - MALNUTRITION [None]
  - NAUSEA [None]
  - PAIN [None]
  - VOMITING [None]
